FAERS Safety Report 17476402 (Version 1)
Quarter: 2020Q1

REPORT INFORMATION
  Report Type: Report from Study
  Country: CA (occurrence: CA)
  Receive Date: 20200228
  Receipt Date: 20200228
  Transmission Date: 20200409
  Serious: Yes (Other)
  Sender: FDA-Public Use
  Company Number: CA-JNJFOC-20190739232

PATIENT
  Sex: Male

DRUGS (5)
  1. IBUPROFEN. [Concomitant]
     Active Substance: IBUPROFEN
  2. SUBOXONE [Concomitant]
     Active Substance: BUPRENORPHINE HYDROCHLORIDE\NALOXONE HYDROCHLORIDE
  3. SIMPONI [Suspect]
     Active Substance: GOLIMUMAB
     Indication: ANKYLOSING SPONDYLITIS
     Route: 058
     Dates: start: 201808
  4. SIMPONI [Suspect]
     Active Substance: GOLIMUMAB
     Route: 058
  5. RISPERIDONE. [Concomitant]
     Active Substance: RISPERIDONE

REACTIONS (5)
  - Urinary tract infection [Unknown]
  - Mental impairment [Recovered/Resolved]
  - Headache [Unknown]
  - Paraesthesia [Recovering/Resolving]
  - Somnolence [Recovered/Resolved]
